FAERS Safety Report 10244988 (Version 2)
Quarter: 2014Q4

REPORT INFORMATION
  Report Type: Spontaneous
  Country: US (occurrence: US)
  Receive Date: 20140618
  Receipt Date: 20141218
  Transmission Date: 20150528
  Serious: No
  Sender: FDA-Public Use
  Company Number: US-GALDERMA-US14001908

PATIENT
  Age: 47 Year
  Sex: Female

DRUGS (4)
  1. ORACEA [Suspect]
     Active Substance: DOXYCYCLINE
     Dosage: 40MG
     Route: 048
     Dates: start: 201404, end: 20140520
  2. CERAVE MOISTURIZER [Concomitant]
     Active Substance: OCTINOXATE\TITANIUM DIOXIDE\ZINC OXIDE
  3. CERAVE FACIAL WASH [Concomitant]
     Indication: THERAPEUTIC SKIN CARE TOPICAL
     Route: 061
     Dates: start: 2012
  4. MIRVASO [Suspect]
     Active Substance: BRIMONIDINE TARTRATE
     Indication: ROSACEA
     Dosage: 0.33%
     Route: 061
     Dates: start: 20140329, end: 20140406

REACTIONS (11)
  - Drug ineffective for unapproved indication [Not Recovered/Not Resolved]
  - Vasodilatation [Not Recovered/Not Resolved]
  - Rash macular [Not Recovered/Not Resolved]
  - Pruritus [Recovered/Resolved]
  - Dry skin [Recovered/Resolved]
  - Erythema [Not Recovered/Not Resolved]
  - Skin tightness [Recovered/Resolved]
  - Product use issue [Recovered/Resolved]
  - Eye irritation [Recovered/Resolved]
  - Condition aggravated [Not Recovered/Not Resolved]
  - Flushing [Not Recovered/Not Resolved]

NARRATIVE: CASE EVENT DATE: 20140402
